FAERS Safety Report 11195728 (Version 1)
Quarter: 2015Q2

REPORT INFORMATION
  Report Type: Spontaneous
  Country: US (occurrence: US)
  Receive Date: 20150617
  Receipt Date: 20150617
  Transmission Date: 20150821
  Serious: No
  Sender: FDA-Public Use
  Company Number: US-BIOGENIDEC-2015BI082202

PATIENT
  Age: 38 Year
  Sex: Female
  Weight: 105 kg

DRUGS (5)
  1. AMPYRA [Concomitant]
     Active Substance: DALFAMPRIDINE
     Indication: MULTIPLE SCLEROSIS
     Route: 048
     Dates: start: 201202, end: 2013
  2. AVONEX [Suspect]
     Active Substance: INTERFERON BETA-1A
     Indication: MULTIPLE SCLEROSIS
     Route: 030
     Dates: start: 2001, end: 2014
  3. MIRABEGRON [Concomitant]
     Active Substance: MIRABEGRON
     Dates: start: 201503
  4. CRANBERRY. [Concomitant]
     Active Substance: CRANBERRY
     Dates: start: 2014
  5. OXYCODONE HYDROCHLORIDE, PARACETAMOL [Concomitant]
     Dates: start: 2013

REACTIONS (4)
  - Chills [Recovered/Resolved]
  - Headache [Recovered/Resolved]
  - Ankle fracture [Recovered/Resolved]
  - Asthenia [Recovered/Resolved]

NARRATIVE: CASE EVENT DATE: 2011
